FAERS Safety Report 18676695 (Version 3)
Quarter: 2021Q1

REPORT INFORMATION
  Report Type: Spontaneous
  Country: JP (occurrence: JP)
  Receive Date: 20201229
  Receipt Date: 20210108
  Transmission Date: 20210419
  Serious: Yes (Other)
  Sender: FDA-Public Use
  Company Number: JP-PFIZER INC-2020506939

PATIENT
  Age: 9 Decade
  Sex: Female

DRUGS (1)
  1. IBRANCE [Suspect]
     Active Substance: PALBOCICLIB
     Indication: BREAST CANCER FEMALE
     Dosage: UNK
     Dates: start: 20200827, end: 20201210

REACTIONS (5)
  - Acute kidney injury [Unknown]
  - Full blood count decreased [Not Recovered/Not Resolved]
  - Blood creatinine increased [Recovering/Resolving]
  - Hyperkalaemia [Unknown]
  - Neutrophil count abnormal [Recovering/Resolving]

NARRATIVE: CASE EVENT DATE: 2020
